FAERS Safety Report 9102195 (Version 1)
Quarter: 2013Q1

REPORT INFORMATION
  Report Type: Spontaneous
  Country: DE (occurrence: DE)
  Receive Date: 20130218
  Receipt Date: 20130218
  Transmission Date: 20140127
  Serious: Yes (Hospitalization)
  Sender: FDA-Public Use
  Company Number: DE-ROCHE-1191839

PATIENT
  Sex: Male

DRUGS (3)
  1. PEGASYS [Suspect]
     Indication: HEPATITIS C
     Route: 065
     Dates: end: 201207
  2. COPEGUS [Suspect]
     Indication: HEPATITIS C
     Route: 065
     Dates: end: 201207
  3. INCIVO [Suspect]
     Indication: HEPATITIS C
     Route: 065
     Dates: end: 201207

REACTIONS (3)
  - Pneumonia [Unknown]
  - Leukaemia [Unknown]
  - Drug ineffective [Unknown]
